FAERS Safety Report 6234765-3 (Version None)
Quarter: 2009Q2

REPORT INFORMATION
  Report Type: 
  Country: None (occurrence: None)
  Receive Date: 20090618
  Receipt Date: 20090608
  Transmission Date: 20091009
  Serious: Yes (Death, Other)
  Sender: FDA-Public Use
  Company Number: PHHY2009TR22434

PATIENT
  Age: 52 Year
  Sex: Male

DRUGS (3)
  1. CYCLOSPORINE [Suspect]
     Indication: RENAL TRANSPLANT
     Dosage: UNK
  2. IMIPENEM [Suspect]
     Indication: PNEUMONIA
     Dosage: 2 X 0.5 G
  3. CILASTATIN [Suspect]
     Indication: PNEUMONIA
     Dosage: 0.5 MG, BID

REACTIONS (10)
  - CARDIAC FAILURE [None]
  - CHRONIC ALLOGRAFT NEPHROPATHY [None]
  - DEPRESSED LEVEL OF CONSCIOUSNESS [None]
  - DISORIENTATION [None]
  - MUSCLE CONTRACTIONS INVOLUNTARY [None]
  - PNEUMONIA [None]
  - RENAL ARTERY STENOSIS [None]
  - RENAL FAILURE ACUTE [None]
  - STATUS EPILEPTICUS [None]
  - STUPOR [None]
